FAERS Safety Report 4575374-1 (Version None)
Quarter: 2005Q1

REPORT INFORMATION
  Report Type: 
  Country: None (occurrence: None)
  Receive Date: 20050209
  Receipt Date: 20050131
  Transmission Date: 20050727
  Serious: Yes (Hospitalization)
  Sender: FDA-Public Use
  Company Number: US-ABBOTT-05P-163-0289479-00

PATIENT
  Sex: Female

DRUGS (6)
  1. HUMIRA [Suspect]
     Indication: RHEUMATOID ARTHRITIS
     Route: 058
     Dates: start: 20040601
  2. PREDNISONE [Concomitant]
     Indication: RHEUMATOID ARTHRITIS
     Route: 048
     Dates: start: 19990101
  3. TOPIRAMATE [Concomitant]
     Indication: MIGRAINE
  4. LEVOTHYROXINE SODIUM [Concomitant]
     Indication: THYROID DISORDER
  5. METOPROLOL [Concomitant]
     Indication: BLOOD PRESSURE INCREASED
  6. NIFEDIPINE [Concomitant]
     Indication: BLOOD PRESSURE INCREASED

REACTIONS (2)
  - MIGRAINE [None]
  - PNEUMONIA [None]
